FAERS Safety Report 14752821 (Version 2)
Quarter: 2019Q4

REPORT INFORMATION
  Report Type: Spontaneous
  Country: US (occurrence: US)
  Receive Date: 20180412
  Receipt Date: 20191120
  Transmission Date: 20200122
  Serious: Yes (Other)
  Sender: FDA-Public Use
  Company Number: US-009507513-1804USA003543

PATIENT
  Age: 81 Year
  Sex: Female

DRUGS (9)
  1. INTRON A [Suspect]
     Active Substance: INTERFERON ALFA-2B
     Indication: BLADDER CANCER
     Dosage: 18 MILLION INTERNATIONAL UNITS (MIU), 3 MILLILITER (ML) MDV, 18MIU 3ML MDV, 300000 UNITS (0.05 ML) T
     Route: 023
     Dates: start: 20170715, end: 201707
  2. PRINIVIL [Concomitant]
     Active Substance: LISINOPRIL
  3. ESTRACE [Concomitant]
     Active Substance: ESTRADIOL
     Dosage: 0.1MG/GM
  4. LACTULOSE. [Concomitant]
     Active Substance: LACTULOSE
     Dosage: SOLUTION, 10GM/15ML
  5. PROCHLORPERAZINE. [Concomitant]
     Active Substance: PROCHLORPERAZINE
  6. INTRON A [Suspect]
     Active Substance: INTERFERON ALFA-2B
     Dosage: 18MIU, 3ML MDV, 0.05 ML, 3 TIMES A WEEK ON ALTERNATING DAYS
     Route: 023
     Dates: start: 20170718, end: 20191113
  7. AMLODIPINE BESYLATE. [Concomitant]
     Active Substance: AMLODIPINE BESYLATE
  8. LIDOCAINE (+) PRILOCAINE [Concomitant]
  9. ONDANSETRON [Concomitant]
     Active Substance: ONDANSETRON

REACTIONS (5)
  - Rash pruritic [Not Recovered/Not Resolved]
  - Hypertension [Not Recovered/Not Resolved]
  - Product use in unapproved indication [Unknown]
  - Wrong technique in product usage process [Unknown]
  - Rheumatoid arthritis [Not Recovered/Not Resolved]

NARRATIVE: CASE EVENT DATE: 20170715
